FAERS Safety Report 17306061 (Version 1)
Quarter: 2020Q1

REPORT INFORMATION
  Report Type: Spontaneous
  Country: US (occurrence: US)
  Receive Date: 20200106
  Receipt Date: 20200106
  Transmission Date: 20200409
  Serious: No
  Sender: FDA-Public Use
  Company Number: None

PATIENT
  Age: 93 Year
  Sex: Female

DRUGS (9)
  1. MEGASE ES [Concomitant]
  2. ALEVE [Concomitant]
     Active Substance: NAPROXEN SODIUM
  3. LETROZOLE. [Concomitant]
     Active Substance: LETROZOLE
  4. ZANTAC [Concomitant]
     Active Substance: RANITIDINE HYDROCHLORIDE
  5. VERZENIO [Suspect]
     Active Substance: ABEMACICLIB
     Indication: BREAST CANCER FEMALE
     Route: 048
     Dates: start: 20190926
  6. FLONASE [Concomitant]
     Active Substance: FLUTICASONE PROPIONATE
  7. TRAMADOL HCL [Concomitant]
     Active Substance: TRAMADOL HYDROCHLORIDE
  8. CEFDINIR. [Concomitant]
     Active Substance: CEFDINIR
  9. METFORMIN HCL [Concomitant]
     Active Substance: METFORMIN HYDROCHLORIDE

REACTIONS (6)
  - Decreased appetite [None]
  - Asthenia [None]
  - Fatigue [None]
  - Hypoglycaemia [None]
  - Taste disorder [None]
  - Anaemia [None]
